FAERS Safety Report 17009776 (Version 1)
Quarter: 2019Q4

REPORT INFORMATION
  Report Type: Spontaneous
  Country: US (occurrence: US)
  Receive Date: 20190930
  Receipt Date: 20190930
  Transmission Date: 20200122
  Serious: Yes (Hospitalization)
  Sender: FDA-Public Use
  Company Number: None

PATIENT
  Age: 62 Year

DRUGS (7)
  1. ESBRIET [Suspect]
     Active Substance: PIRFENIDONE
     Indication: IDIOPATHIC PULMONARY FIBROSIS
     Route: 048
     Dates: start: 20190416
  2. JARDIANCE [Concomitant]
     Active Substance: EMPAGLIFLOZIN
  3. LOMAIRA [Concomitant]
     Active Substance: PHENTERMINE HYDROCHLORIDE
  4. AMITRIPTYLIN [Concomitant]
     Active Substance: AMITRIPTYLINE
  5. LISINOPRIL. [Concomitant]
     Active Substance: LISINOPRIL
  6. BELSOMRA [Concomitant]
     Active Substance: SUVOREXANT
  7. LINZESS [Concomitant]
     Active Substance: LINACLOTIDE

REACTIONS (4)
  - Diarrhoea [None]
  - Upper respiratory tract infection [None]
  - Vomiting [None]
  - Nausea [None]
